FAERS Safety Report 26211080 (Version 1)
Quarter: 2025Q4

REPORT INFORMATION
  Report Type: Spontaneous
  Country: TH (occurrence: TH)
  Receive Date: 20251230
  Receipt Date: 20251230
  Transmission Date: 20260117
  Serious: Yes (Hospitalization, Other)
  Sender: LEGACY PHARMACEUTICAL PACKAGING
  Company Number: TH-LEGACY PHARMA INC. SEZC-LGP202512-000477

PATIENT
  Age: 9 Year
  Sex: Female

DRUGS (2)
  1. AZATHIOPRINE [Suspect]
     Active Substance: AZATHIOPRINE
     Indication: Systemic lupus erythematosus
     Dosage: 50 MILLIGRAM, DAILY
     Route: 065
  2. PREDNISOLONE [Suspect]
     Active Substance: PREDNISOLONE
     Indication: Systemic lupus erythematosus
     Dosage: 50 MILLIGRAM, DAILY
     Route: 065

REACTIONS (10)
  - Pneumonia [Recovering/Resolving]
  - Infectious pleural effusion [Recovering/Resolving]
  - Dysuria [Recovering/Resolving]
  - Abdominal tenderness [Recovering/Resolving]
  - Generalised tonic-clonic seizure [Recovering/Resolving]
  - Brain abscess [Recovering/Resolving]
  - Autoimmune haemolytic anaemia [Recovering/Resolving]
  - Abdominal pain [Recovering/Resolving]
  - Disseminated nocardiosis [Recovering/Resolving]
  - Product use in unapproved indication [Unknown]
